FAERS Safety Report 6317261-4 (Version None)
Quarter: 2009Q3

REPORT INFORMATION
  Report Type: 
  Country: None (occurrence: None)
  Receive Date: 20090820
  Receipt Date: 20090817
  Transmission Date: 20100115
  Serious: Yes (Hospitalization, Disabling)
  Sender: FDA-Public Use
  Company Number: GB-JNJCH-2009022152

PATIENT
  Age: 56 Year
  Sex: Male
  Weight: 70 kg

DRUGS (2)
  1. SUDAFED 12 HOUR [Suspect]
     Indication: SINUS HEADACHE
     Dosage: TEXT:1 ^DF^ 4 TIMES A DAY
     Route: 048
     Dates: start: 20090725, end: 20090726
  2. PARACETAMOL [Concomitant]
     Indication: DRUG USE FOR UNKNOWN INDICATION
     Dosage: TEXT:UNSPECIFIED
     Route: 065

REACTIONS (2)
  - CEREBRAL INFARCTION [None]
  - VISUAL IMPAIRMENT [None]
